FAERS Safety Report 18893067 (Version 1)
Quarter: 2021Q1

REPORT INFORMATION
  Report Type: Report from Study
  Country: US (occurrence: US)
  Receive Date: 20210215
  Receipt Date: 20210215
  Transmission Date: 20210420
  Serious: Yes (Life-Threatening, Hospitalization)
  Sender: FDA-Public Use
  Company Number: US-EMD SERONO-9178919

PATIENT
  Age: 54 Year
  Sex: Male

DRUGS (2)
  1. MAVENCLAD [Suspect]
     Active Substance: CLADRIBINE
     Indication: MULTIPLE SCLEROSIS
     Dosage: YEAR ONE MONTH ONE TREATMENT.
     Route: 048
     Dates: start: 20190910, end: 2019
  2. MAVENCLAD [Suspect]
     Active Substance: CLADRIBINE
     Dosage: YEAR ONE MONTH TWO TREATMENT.
     Route: 048
     Dates: start: 2019, end: 20191006

REACTIONS (4)
  - Pneumonia aspiration [Unknown]
  - Colostomy [Unknown]
  - Procedural intestinal perforation [Unknown]
  - Sepsis [Unknown]

NARRATIVE: CASE EVENT DATE: 2020
